FAERS Safety Report 8962099 (Version 1)
Quarter: 2012Q4

REPORT INFORMATION
  Report Type: 
  Country: TW (occurrence: TW)
  Receive Date: 20121213
  Receipt Date: 20121213
  Transmission Date: 20130627
  Serious: Yes (Other)
  Sender: FDA-Public Use
  Company Number: TW-AMGEN-TWNSP2012079778

PATIENT
  Age: 87 Year
  Sex: Female

DRUGS (6)
  1. NEULASTA [Suspect]
     Dosage: 6 mg, UNK
     Route: 058
     Dates: start: 201210, end: 201210
  2. RITUXIMAB [Concomitant]
     Indication: LYMPHOMA
     Dosage: UNK
  3. CYCLOPHOSPHAMIDE [Concomitant]
     Indication: LYMPHOMA
     Dosage: UNK
  4. DOXORUBICIN [Concomitant]
     Indication: LYMPHOMA
     Dosage: UNK
  5. VINCRISTINE [Concomitant]
     Indication: LYMPHOMA
     Dosage: UNK
  6. PREDNISONE [Concomitant]
     Indication: LYMPHOMA
     Dosage: UNK

REACTIONS (1)
  - Palpitations [Unknown]
